FAERS Safety Report 9022253 (Version 2)
Quarter: 2013Q1

REPORT INFORMATION
  Report Type: Spontaneous
  Country: US (occurrence: US)
  Receive Date: 20130118
  Receipt Date: 20130214
  Transmission Date: 20140127
  Serious: Yes (Other)
  Sender: FDA-Public Use
  Company Number: PHEH2013US001480

PATIENT
  Sex: Male

DRUGS (1)
  1. DIOVAN [Suspect]
     Route: 048

REACTIONS (1)
  - Cerebrovascular accident [Unknown]
